FAERS Safety Report 22162292 (Version 1)
Quarter: 2023Q1

REPORT INFORMATION
  Report Type: Spontaneous
  Country: US (occurrence: US)
  Receive Date: 20230331
  Receipt Date: 20230331
  Transmission Date: 20230418
  Serious: No
  Sender: FDA-Public Use
  Company Number: US-drreddys-SPO/USA/23/0160465

PATIENT
  Age: 73 Year
  Sex: Male

DRUGS (12)
  1. LENALIDOMIDE [Suspect]
     Active Substance: LENALIDOMIDE
     Indication: Plasma cell myeloma
     Dosage: 1 CAPSULE BY MOUTH EVERY DAY FOR 21 DAYS ON FOLLOWED BY 7 DAYS OFF
     Route: 048
     Dates: start: 20220411
  2. GABAPENTIN [Concomitant]
     Active Substance: GABAPENTIN
     Indication: Product used for unknown indication
  3. ATORVASTATIN TAB 10MG [Concomitant]
     Indication: Product used for unknown indication
  4. KLOR-CON PAC 20MEQ [Concomitant]
     Indication: Product used for unknown indication
  5. MAGNESIUM TAB 400MG [Concomitant]
     Indication: Product used for unknown indication
  6. METFORMIN HC TAB  500MG [Concomitant]
     Indication: Product used for unknown indication
  7. NIFEDIPINE E TB2 30MG [Concomitant]
     Indication: Product used for unknown indication
  8. OLMESARTAN M TAB 40MG [Concomitant]
     Indication: Product used for unknown indication
  9. OSCIMIN TAB 0.125MG [Concomitant]
     Indication: Product used for unknown indication
  10. PANTOPRAZOLE TBE  40MG [Concomitant]
     Indication: Product used for unknown indication
  11. PANTOPRAZOLE TBE  40MG [Concomitant]
  12. VITAMIN D (C CAP 50 MCG(2 [Concomitant]
     Indication: Product used for unknown indication

REACTIONS (2)
  - Product dose omission issue [Unknown]
  - Product administration interrupted [Unknown]
